FAERS Safety Report 25213687 (Version 1)
Quarter: 2025Q2

REPORT INFORMATION
  Report Type: Spontaneous
  Country: CN (occurrence: CN)
  Receive Date: 20250418
  Receipt Date: 20250418
  Transmission Date: 20250717
  Serious: Yes (Hospitalization, Other)
  Sender: PFIZER
  Company Number: CN-PFIZER INC-PV202500043203

PATIENT
  Age: 19 Year
  Sex: Male
  Weight: 42.3 kg

DRUGS (2)
  1. CYTARABINE [Suspect]
     Active Substance: CYTARABINE
     Indication: Non-Hodgkin^s lymphoma
     Dosage: 200 MG, 1X/DAY (DAY1-2)
     Route: 041
     Dates: start: 20250313, end: 20250314
  2. CYCLOPHOSPHAMIDE [Suspect]
     Active Substance: CYCLOPHOSPHAMIDE
     Indication: Non-Hodgkin^s lymphoma
     Dosage: 1 G, 1X/DAY (DAY 1)
     Route: 041
     Dates: start: 20250313, end: 20250313

REACTIONS (3)
  - Myelosuppression [Recovered/Resolved]
  - Asthenia [Recovering/Resolving]
  - Off label use [Unknown]

NARRATIVE: CASE EVENT DATE: 20250313
